FAERS Safety Report 25423366 (Version 1)
Quarter: 2025Q2

REPORT INFORMATION
  Report Type: Spontaneous
  Country: US (occurrence: None)
  Receive Date: 20250611
  Receipt Date: 20250611
  Transmission Date: 20250717
  Serious: No
  Sender: FDA-CTU
  Company Number: None

PATIENT
  Age: 75 Year
  Sex: Male

DRUGS (7)
  1. CELECOXIB [Suspect]
     Active Substance: CELECOXIB
     Indication: Pain
     Dosage: 100.00 TWICE A DAY ORAL
     Route: 048
  2. FISH OIL [Suspect]
     Active Substance: FISH OIL
     Indication: Hyperlipidaemia
     Dosage: 1.000 DF DOSAGE FORM TWICE A DAY ORAL ?
     Route: 048
  3. DULOXETINE HYDROCHLORIDE [Suspect]
     Active Substance: DULOXETINE HYDROCHLORIDE
  4. NAPROXEN [Suspect]
     Active Substance: NAPROXEN
  5. ASPIRIN [Suspect]
     Active Substance: ASPIRIN
  6. ASPIRIN [Suspect]
     Active Substance: ASPIRIN
  7. DICLOFENAC [Suspect]
     Active Substance: DICLOFENAC

REACTIONS (5)
  - Haemorrhage [None]
  - Duodenal ulcer [None]
  - Diarrhoea [None]
  - Gastric haemorrhage [None]
  - Salivary hypersecretion [None]

NARRATIVE: CASE EVENT DATE: 20240715
